FAERS Safety Report 8337850-5 (Version None)
Quarter: 2012Q1

REPORT INFORMATION
  Report Type: 
  Country: None (occurrence: None)
  Receive Date: 20120329
  Receipt Date: 20101001
  Transmission Date: 20120608
  Serious: Yes (Other)
  Sender: FDA-Public Use
  Company Number: PHHY2010US65783

PATIENT
  Age: 68 Year
  Sex: Male

DRUGS (14)
  1. POTASSIUM CHLORIDE [Suspect]
     Dosage: UNK
  2. AMLODIPINE [Suspect]
     Dosage: 10 MG, UNK
  3. FUROSEMIDE [Suspect]
     Dosage: 20 MG, UNK
  4. TAMSULOSIN HCL [Suspect]
     Dosage: 0.4 MG, UNK
  5. TRAVATAN Z [Suspect]
     Dosage: 0.004 %, UNK
  6. CYMBALTA [Suspect]
     Dosage: 30 MG, UNK
  7. EXELON [Suspect]
     Dosage: 9.5 MG, QD, TRANSDERMAL
     Route: 062
  8. NAMENDA [Suspect]
     Dosage: 5 MG, UNK
  9. LISINOPRIL [Suspect]
     Dosage: 40 MG, UNK
  10. VYTORIN [Suspect]
     Dosage: 10/40 MG
  11. SERTRALINE (SERTRALINE) 25MG [Suspect]
     Dosage: 25 MG, UNK
  12. ASPIRIN [Suspect]
     Dosage: 325 MG, UNK
  13. CARVEDILOL [Suspect]
     Dosage: 12.5 MG, UNK
  14. METFORMIN HCL [Suspect]
     Dosage: 500 MG, UNK

REACTIONS (4)
  - DRUG DOSE OMISSION [None]
  - INSOMNIA [None]
  - GLAUCOMA [None]
  - SOMNOLENCE [None]
